FAERS Safety Report 13802279 (Version 3)
Quarter: 2017Q4

REPORT INFORMATION
  Report Type: Spontaneous
  Country: US (occurrence: US)
  Receive Date: 20170727
  Receipt Date: 20171226
  Transmission Date: 20180320
  Serious: No
  Sender: FDA-Public Use
  Company Number: US-ACTELION-A-US2017-157334

PATIENT
  Age: 31 Year
  Sex: Female
  Weight: 68.27 kg

DRUGS (3)
  1. SILDENAFIL CITRATE. [Concomitant]
     Active Substance: SILDENAFIL CITRATE
  2. OPSUMIT [Suspect]
     Active Substance: MACITENTAN
     Indication: PULMONARY ARTERIAL HYPERTENSION
     Dosage: 10 MG, UNK
     Route: 048
  3. VELETRI [Suspect]
     Active Substance: EPOPROSTENOL
     Indication: PULMONARY ARTERIAL HYPERTENSION
     Dosage: 20 NG/KG, PER MIN
     Route: 042

REACTIONS (6)
  - Device alarm issue [Recovered/Resolved]
  - Flushing [Unknown]
  - Dizziness [Recovered/Resolved]
  - Rash erythematous [Unknown]
  - Rash pruritic [Unknown]
  - Feeling hot [Unknown]
